FAERS Safety Report 6838093-4 (Version None)
Quarter: 2010Q3

REPORT INFORMATION
  Report Type: 
  Country: None (occurrence: None)
  Receive Date: 20100713
  Receipt Date: 20070531
  Transmission Date: 20110219
  Serious: No
  Sender: FDA-Public Use
  Company Number: US-PFIZER INC-2007045385

PATIENT
  Sex: Female
  Weight: 88.6 kg

DRUGS (5)
  1. CHANTIX [Suspect]
     Indication: SMOKING CESSATION THERAPY
     Dates: start: 20070501
  2. LIPITOR [Concomitant]
     Indication: BLOOD CHOLESTEROL INCREASED
  3. ATENOLOL [Concomitant]
     Indication: HYPERTENSION
  4. DRUG USED IN DIABETES [Concomitant]
     Indication: DIABETES MELLITUS
  5. PAXIL [Concomitant]
     Indication: DEPRESSION

REACTIONS (3)
  - DECREASED APPETITE [None]
  - LETHARGY [None]
  - NAUSEA [None]
